FAERS Safety Report 8246109-6 (Version None)
Quarter: 2012Q1

REPORT INFORMATION
  Report Type: 
  Country: None (occurrence: None)
  Receive Date: 20120328
  Receipt Date: 20120328
  Transmission Date: 20120608
  Serious: Yes (Other)
  Sender: FDA-Public Use
  Company Number: None

PATIENT
  Age: 75 Year
  Sex: Male
  Weight: 72.5755 kg

DRUGS (1)
  1. PRADAXA [Suspect]
     Dosage: 150 MGM TWO DAILY MOUTH 1 AM + 1 PM MOUTH
     Route: 048

REACTIONS (1)
  - SKIN DISCOLOURATION [None]
